FAERS Safety Report 14665166 (Version 1)
Quarter: 2018Q1

REPORT INFORMATION
  Report Type: Spontaneous
  Country: US (occurrence: US)
  Receive Date: 20180320
  Receipt Date: 20180320
  Transmission Date: 20180509
  Serious: No
  Sender: FDA-Public Use
  Company Number: None

PATIENT
  Age: 31 Year
  Sex: Female
  Weight: 72.6 kg

DRUGS (1)
  1. SUCCINYLCHOLINE [Suspect]
     Active Substance: SUCCINYLCHOLINE
     Indication: NEUROMUSCULAR BLOCKING THERAPY
     Dosage: ?          OTHER FREQUENCY:ONCE;?
     Route: 042
     Dates: start: 20180320, end: 20180320

REACTIONS (3)
  - Therapy non-responder [None]
  - Product quality issue [None]
  - Muscle contractions involuntary [None]

NARRATIVE: CASE EVENT DATE: 20180320
